FAERS Safety Report 7670130-X (Version None)
Quarter: 2011Q3

REPORT INFORMATION
  Report Type: 
  Country: None (occurrence: None)
  Receive Date: 20110808
  Receipt Date: 20110802
  Transmission Date: 20111222
  Serious: No
  Sender: FDA-Public Use
  Company Number: JP-ASTRAZENECA-2011SE45961

PATIENT
  Age: 77 Year
  Sex: Male

DRUGS (1)
  1. CASODEX [Suspect]
     Route: 048
     Dates: start: 20080101

REACTIONS (2)
  - BREAST SWELLING [None]
  - WAIST CIRCUMFERENCE INCREASED [None]
